FAERS Safety Report 5743826-4 (Version None)
Quarter: 2008Q2

REPORT INFORMATION
  Report Type: 
  Country: None (occurrence: None)
  Receive Date: 20080519
  Receipt Date: 20080519
  Transmission Date: 20081010
  Serious: Yes (Other)
  Sender: FDA-Public Use
  Company Number: None

PATIENT
  Age: 46 Year
  Sex: Female
  Weight: 79.3795 kg

DRUGS (1)
  1. TERBINAFINE 250MG      SANDOZ [Suspect]
     Indication: ONYCHOMYCOSIS
     Dosage: ONE TABLET   ONCE A DAY   PO
     Route: 048
     Dates: start: 20080503, end: 20080514

REACTIONS (2)
  - GLOSSODYNIA [None]
  - RASH [None]
